FAERS Safety Report 9096464 (Version 6)
Quarter: 2014Q1

REPORT INFORMATION
  Report Type: Spontaneous
  Country: PH (occurrence: PH)
  Receive Date: 20130211
  Receipt Date: 20140212
  Transmission Date: 20141002
  Serious: Yes (Death, Hospitalization)
  Sender: FDA-Public Use
  Company Number: PH-MERCK-1302PHL003737

PATIENT
  Age: 63 Year
  Sex: Female

DRUGS (1)
  1. JANUVIA [Suspect]
     Dosage: 50 MG, ONE TABLET, QD
     Route: 048
     Dates: start: 20121029

REACTIONS (3)
  - Drug intolerance [Fatal]
  - Dyspnoea [Unknown]
  - Asthenia [Unknown]
